FAERS Safety Report 5898227-5 (Version None)
Quarter: 2008Q3

REPORT INFORMATION
  Report Type: 
  Country: None (occurrence: None)
  Receive Date: 20080925
  Receipt Date: 20080916
  Transmission Date: 20090109
  Serious: Yes (Other)
  Sender: FDA-Public Use
  Company Number: JP-JNJFOC-20080903740

PATIENT
  Age: 75 Year
  Sex: Male

DRUGS (5)
  1. LEVAQUIN [Suspect]
     Indication: ATYPICAL MYCOBACTERIAL INFECTION
     Dosage: FOR 4 YEARS AND 1 MONTH AFTER THE SURGERY
     Route: 065
  2. RIMACTANE [Suspect]
     Indication: ATYPICAL MYCOBACTERIAL INFECTION
     Dosage: FOR 4 YEARS AND 1 MONTH AFTER THE SURGERY
     Route: 065
  3. MUCODYNE [Concomitant]
     Dosage: FOR 4 YEARS AND 1 MONTH AFTER THE SURGERY
  4. MICARDIS [Concomitant]
     Dosage: FOR 10 MONTHS AFTER THE STENT INSERTION
  5. ARTIST [Concomitant]
     Dosage: FOR 10 MONTHS AFTER THE STENT INSERTION

REACTIONS (1)
  - MELANOSIS [None]
